FAERS Safety Report 9802103 (Version 1)
Quarter: 2014Q1

REPORT INFORMATION
  Report Type: Spontaneous
  Country: US (occurrence: US)
  Receive Date: 20140107
  Receipt Date: 20140107
  Transmission Date: 20141002
  Serious: Yes (Death, Other)
  Sender: FDA-Public Use
  Company Number: US-UCBSA-107932

PATIENT
  Age: 60 Year
  Sex: Female

DRUGS (8)
  1. ACETAMINOPHEN/HYDROCODONE [Suspect]
     Dosage: INGESTION
  2. ALPRAZOLAM [Suspect]
     Dosage: INGESTION
  3. METOPROLOL [Suspect]
     Dosage: ROUTE: INGESTION
  4. ALLOPURINOL [Suspect]
     Dosage: ROUTE: INGESTION
  5. DULOXETINE [Suspect]
     Dosage: INGESTION
  6. GABAPENTIN [Suspect]
     Dosage: INGESTION
  7. FUROSEMIDE [Suspect]
     Dosage: INGESTION
  8. ZOLPIDEM [Suspect]
     Dosage: INGESTION

REACTIONS (1)
  - Completed suicide [Fatal]
